FAERS Safety Report 8802143 (Version 1)
Quarter: 2012Q4

REPORT INFORMATION
  Report Type: 
  Country: US (occurrence: US)
  Receive Date: 20120921
  Receipt Date: 20120921
  Transmission Date: 20130627
  Serious: Yes (Other)
  Sender: FDA-Public Use
  Company Number: US-ASTRAZENECA-2012SE71693

PATIENT
  Age: 72 Year
  Sex: Male

DRUGS (2)
  1. TOPROL [Suspect]
     Route: 048
  2. BRILINTA [Suspect]
     Route: 048

REACTIONS (1)
  - Myocardial infarction [Unknown]
